FAERS Safety Report 6015434-1 (Version None)
Quarter: 2008Q4

REPORT INFORMATION
  Report Type: 
  Country: None (occurrence: None)
  Receive Date: 20081222
  Receipt Date: 20081216
  Transmission Date: 20090506
  Serious: Yes (Other)
  Sender: FDA-Public Use
  Company Number: BR-BAYER-200823448LA

PATIENT
  Age: 36 Year
  Sex: Female
  Weight: 58 kg

DRUGS (4)
  1. MIRENA [Suspect]
     Indication: CONTRACEPTION
     Route: 015
     Dates: start: 20030101, end: 20080525
  2. MIRENA [Suspect]
     Route: 015
     Dates: start: 20080525
  3. DIELOFT [Concomitant]
     Indication: PREMENSTRUAL SYNDROME
     Route: 048
     Dates: start: 20070701, end: 20070701
  4. PAROXETINE HCL [Concomitant]
     Indication: PREMENSTRUAL SYNDROME
     Route: 048
     Dates: start: 20081101, end: 20081101

REACTIONS (12)
  - ABDOMINAL DISTENSION [None]
  - ABDOMINAL PAIN [None]
  - BREAST PAIN [None]
  - BREAST SWELLING [None]
  - EYE DISORDER [None]
  - HYPOMENORRHOEA [None]
  - MALAISE [None]
  - MENORRHAGIA [None]
  - MIGRAINE [None]
  - NERVOUSNESS [None]
  - POLYMENORRHOEA [None]
  - SOMNOLENCE [None]
